FAERS Safety Report 13330034 (Version 1)
Quarter: 2017Q1

REPORT INFORMATION
  Report Type: Spontaneous
  Country: US (occurrence: US)
  Receive Date: 20170313
  Receipt Date: 20170313
  Transmission Date: 20170428
  Serious: No
  Sender: FDA-Public Use
  Company Number: US-PFIZER INC-2017099511

PATIENT
  Age: 48 Year
  Sex: Female

DRUGS (2)
  1. TRICOR [Interacting]
     Active Substance: FENOFIBRATE
     Dosage: 145 MG, DAILY (1 TABLET QD)
     Dates: start: 20140214
  2. ATORVASTATIN CALCIUM. [Suspect]
     Active Substance: ATORVASTATIN CALCIUM
     Dosage: 10 MG, DAILY
     Dates: start: 20160411

REACTIONS (1)
  - Drug interaction [Unknown]
